FAERS Safety Report 13689157 (Version 7)
Quarter: 2017Q3

REPORT INFORMATION
  Report Type: Report from Study
  Country: BR (occurrence: BR)
  Receive Date: 20170626
  Receipt Date: 20170829
  Transmission Date: 20171127
  Serious: Yes (Death, Hospitalization, Other)
  Sender: FDA-Public Use
  Company Number: BR-VIIV HEALTHCARE LIMITED-BR2017094880

PATIENT
  Age: 30 Year
  Sex: Female

DRUGS (1)
  1. DOLUTEGRAVIR [Suspect]
     Active Substance: DOLUTEGRAVIR
     Indication: HIV INFECTION
     Dosage: 1 DF, QD
     Route: 048
     Dates: start: 20160615, end: 20170618

REACTIONS (1)
  - Immune reconstitution inflammatory syndrome associated tuberculosis [Fatal]

NARRATIVE: CASE EVENT DATE: 20170601
